FAERS Safety Report 25719423 (Version 1)
Quarter: 2025Q3

REPORT INFORMATION
  Report Type: Report from Study
  Country: PR (occurrence: PR)
  Receive Date: 20250824
  Receipt Date: 20250824
  Transmission Date: 20251020
  Serious: Yes (Hospitalization)
  Sender: ABBVIE
  Company Number: PR-ABBVIE-6424162

PATIENT
  Sex: Female

DRUGS (1)
  1. HUMIRA [Suspect]
     Active Substance: ADALIMUMAB
     Indication: Crohn^s disease
     Route: 058
     Dates: start: 2015, end: 2019

REACTIONS (7)
  - Colectomy [Recovered/Resolved]
  - Herpes zoster [Recovered/Resolved]
  - Eczema [Not Recovered/Not Resolved]
  - Inflammation [Recovered/Resolved]
  - Weight increased [Recovered/Resolved with Sequelae]
  - Anaemia [Unknown]
  - Drug ineffective [Unknown]
